FAERS Safety Report 18722734 (Version 3)
Quarter: 2021Q3

REPORT INFORMATION
  Report Type: Report from Study
  Country: US (occurrence: US)
  Receive Date: 20210111
  Receipt Date: 20210824
  Transmission Date: 20211014
  Serious: No
  Sender: FDA-Public Use
  Company Number: NVSC2021US003720

PATIENT
  Sex: Male

DRUGS (1)
  1. KESIMPTA [Suspect]
     Active Substance: OFATUMUMAB
     Indication: MULTIPLE SCLEROSIS
     Dosage: 1 DF, QMO (1 PEN MONTHLY STARTING AT WEEK 4 AS DIRECTED)
     Route: 058
     Dates: start: 20201218

REACTIONS (1)
  - Rash macular [Unknown]
